FAERS Safety Report 15936759 (Version 1)
Quarter: 2019Q1

REPORT INFORMATION
  Report Type: Report from Study
  Country: AT (occurrence: AT)
  Receive Date: 20190208
  Receipt Date: 20190208
  Transmission Date: 20190417
  Serious: Yes (Hospitalization, Other)
  Sender: FDA-Public Use
  Company Number: AT-BIOGEN-2019BI00693938

PATIENT
  Age: 45 Year
  Sex: Female

DRUGS (1)
  1. TECFIDERA [Suspect]
     Active Substance: DIMETHYL FUMARATE
     Indication: MULTIPLE SCLEROSIS
     Route: 065
     Dates: start: 20140527

REACTIONS (13)
  - Neurological procedural complication [Recovered/Resolved]
  - Procedural nausea [Recovered/Resolved]
  - Malignant melanoma stage I [Recovered/Resolved]
  - Invasive lobular breast carcinoma [Not Recovered/Not Resolved]
  - Gamma-glutamyltransferase increased [Recovered/Resolved]
  - Eczema [Recovered/Resolved]
  - Strabismus [Not Recovered/Not Resolved]
  - Flushing [Recovered/Resolved]
  - Procedural dizziness [Recovered/Resolved]
  - Lymphopenia [Not Recovered/Not Resolved]
  - Meningioma [Recovered/Resolved]
  - Aspartate aminotransferase increased [Recovered/Resolved]
  - Alanine aminotransferase increased [Recovered/Resolved]

NARRATIVE: CASE EVENT DATE: 20151015
